FAERS Safety Report 18760426 (Version 1)
Quarter: 2021Q1

REPORT INFORMATION
  Report Type: Spontaneous
  Country: US (occurrence: US)
  Receive Date: 20210120
  Receipt Date: 20210120
  Transmission Date: 20210419
  Serious: Yes (Other)
  Sender: FDA-Public Use
  Company Number: US-BAUSCH-BL-2021-000419

PATIENT
  Sex: Male

DRUGS (2)
  1. FLUOROURACIL CREAM [Suspect]
     Active Substance: FLUOROURACIL
     Indication: CHOLANGIOCARCINOMA
     Route: 065
  2. FLUOROURACIL CREAM [Suspect]
     Active Substance: FLUOROURACIL
     Indication: BILE DUCT ADENOCARCINOMA

REACTIONS (1)
  - Drug ineffective [Unknown]
